FAERS Safety Report 7907336-8 (Version None)
Quarter: 2011Q4

REPORT INFORMATION
  Report Type: 
  Country: None (occurrence: None)
  Receive Date: 20111110
  Receipt Date: 20111103
  Transmission Date: 20120403
  Serious: Yes (Life-Threatening)
  Sender: FDA-Public Use
  Company Number: FR-GLAXOSMITHKLINE-B0760331A

PATIENT
  Sex: Male

DRUGS (5)
  1. NASONEX [Suspect]
     Indication: ASTHMA
     Route: 065
  2. FLUTICASONE PROPIONATE/SALMETEROL [Suspect]
     Indication: ASTHMA
     Dosage: 2PUFF TWICE PER DAY
     Route: 055
  3. VENTOLIN [Suspect]
     Indication: ASTHMA
     Route: 055
  4. XOLAIR [Suspect]
     Indication: ASTHMA
     Dosage: 300MG MONTHLY
     Route: 058
     Dates: start: 20091217, end: 20110620
  5. SINGULAIR [Suspect]
     Indication: ASTHMA
     Dosage: 10MG PER DAY
     Route: 048

REACTIONS (1)
  - BRONCHIOLOALVEOLAR CARCINOMA [None]
